FAERS Safety Report 12072340 (Version 2)
Quarter: 2016Q1

REPORT INFORMATION
  Report Type: Spontaneous
  Country: IT (occurrence: IT)
  Receive Date: 20160212
  Receipt Date: 20160329
  Transmission Date: 20160526
  Serious: Yes (Hospitalization, Other)
  Sender: FDA-Public Use
  Company Number: IT-AUROBINDO-AUR-APL-2016-01299

PATIENT
  Age: 30 Year
  Sex: Female

DRUGS (7)
  1. QUETIAPINE [Suspect]
     Active Substance: QUETIAPINE
     Indication: BIPOLAR DISORDER
     Dosage: 300 MG TID
     Route: 065
     Dates: start: 2005, end: 201312
  2. HALOPERIDOL. [Suspect]
     Active Substance: HALOPERIDOL
     Indication: BIPOLAR DISORDER
     Dosage: 4 MG TID
     Route: 065
     Dates: start: 2005, end: 201312
  3. CLONAZEPAM. [Suspect]
     Active Substance: CLONAZEPAM
     Indication: BIPOLAR DISORDER
     Dosage: 1 MG, ONCE A DAY
     Route: 065
  4. PALIPERIDONE [Suspect]
     Active Substance: PALIPERIDONE
     Indication: BIPOLAR DISORDER
     Dosage: 6 MG OD
     Route: 065
     Dates: start: 201310, end: 201312
  5. FLUPHENAZINE DECANOATE. [Suspect]
     Active Substance: FLUPHENAZINE DECANOATE
     Dosage: 25 MG I.M.ONCE EVERY 21 DAYS
     Route: 030
     Dates: start: 201310, end: 201312
  6. FLUPHENAZINE DECANOATE. [Suspect]
     Active Substance: FLUPHENAZINE DECANOATE
     Indication: BIPOLAR DISORDER
     Dosage: 25 MG I.M MONTHLY
     Route: 030
     Dates: start: 2005, end: 201312
  7. LORAZEPAM. [Concomitant]
     Active Substance: LORAZEPAM
     Indication: BIPOLAR DISORDER
     Dosage: 2.5 MG OD

REACTIONS (24)
  - Flushing [Recovering/Resolving]
  - Salivary hypersecretion [Recovering/Resolving]
  - Dysarthria [Recovering/Resolving]
  - Tremor [Recovering/Resolving]
  - Abdominal discomfort [Recovering/Resolving]
  - Muscle rigidity [Not Recovered/Not Resolved]
  - Attention deficit/hyperactivity disorder [Recovering/Resolving]
  - Eating disorder [Recovering/Resolving]
  - Head discomfort [Recovering/Resolving]
  - Metabolic disorder [Recovering/Resolving]
  - Bacterial infection [Recovering/Resolving]
  - Neuroleptic malignant syndrome [Recovered/Resolved with Sequelae]
  - Extrapyramidal disorder [Recovering/Resolving]
  - Dysphagia [Recovering/Resolving]
  - Pyrexia [Recovering/Resolving]
  - Abnormal behaviour [Recovering/Resolving]
  - Hyperhidrosis [Recovering/Resolving]
  - Altered state of consciousness [Recovering/Resolving]
  - Negativism [Recovering/Resolving]
  - Nervous system disorder [Recovering/Resolving]
  - Urinary incontinence [Recovering/Resolving]
  - Mutism [Not Recovered/Not Resolved]
  - Viral infection [Recovering/Resolving]
  - Bipolar disorder [Recovering/Resolving]

NARRATIVE: CASE EVENT DATE: 201310
